FAERS Safety Report 12159200 (Version 1)
Quarter: 2016Q1

REPORT INFORMATION
  Report Type: Spontaneous
  Country: US (occurrence: US)
  Receive Date: 20160308
  Receipt Date: 20160308
  Transmission Date: 20160526
  Serious: Yes (Hospitalization)
  Sender: FDA-Public Use
  Company Number: GXBR2016US000829

PATIENT
  Age: 83 Year
  Sex: Female
  Weight: 45.35 kg

DRUGS (5)
  1. TEMAZEPAM. [Concomitant]
     Active Substance: TEMAZEPAM
     Indication: SLEEP DISORDER
     Dosage: UNK DF, UNK
     Route: 065
  2. CHOLESTYRAMINE FOR ORAL SUSPENSION USP [Suspect]
     Active Substance: CHOLESTYRAMINE
     Dosage: 1/2 TO 2/3 OF A SCOOP DAILY
     Route: 048
  3. GELATIN [Concomitant]
     Active Substance: GELATIN
     Indication: NAIL DISORDER
     Dosage: UNK DF, UNK
     Route: 065
  4. CHOLESTYRAMINE FOR ORAL SUSPENSION USP [Suspect]
     Active Substance: CHOLESTYRAMINE
     Indication: IRRITABLE BOWEL SYNDROME
     Dosage: 1 SCOOP DAILY
     Route: 048
  5. LEVOTHYROXINE. [Concomitant]
     Active Substance: LEVOTHYROXINE
     Indication: THYROID DISORDER
     Dosage: 0.88 MG, UNK
     Route: 065

REACTIONS (10)
  - Muscular weakness [Recovering/Resolving]
  - Pain [Recovering/Resolving]
  - Decreased appetite [Unknown]
  - Alopecia [Not Recovered/Not Resolved]
  - Malaise [Unknown]
  - Weight decreased [Not Recovered/Not Resolved]
  - Pancreatitis [Recovering/Resolving]
  - Off label use [Unknown]
  - Back pain [Recovering/Resolving]
  - Diarrhoea [Not Recovered/Not Resolved]

NARRATIVE: CASE EVENT DATE: 20151124
